FAERS Safety Report 11252222 (Version 1)
Quarter: 2015Q3

REPORT INFORMATION
  Report Type: Spontaneous
  Country: US (occurrence: US)
  Receive Date: 20150708
  Receipt Date: 20150708
  Transmission Date: 20151125
  Serious: Yes (Other)
  Sender: FDA-Public Use
  Company Number: US-ELI_LILLY_AND_COMPANY-US201306001260

PATIENT

DRUGS (3)
  1. PLATINUM COMPOUNDS [Concomitant]
     Active Substance: UNSPECIFIED INGREDIENT
  2. GEMZAR [Suspect]
     Active Substance: GEMCITABINE HYDROCHLORIDE
     Indication: NON-SMALL CELL LUNG CANCER
     Route: 042
  3. TAXOL [Concomitant]
     Active Substance: PACLITAXEL
     Dosage: UNK

REACTIONS (2)
  - Pulmonary fibrosis [Unknown]
  - Drug ineffective [Unknown]
